FAERS Safety Report 10044751 (Version 2)
Quarter: 2014Q2

REPORT INFORMATION
  Report Type: Spontaneous
  Country: RU (occurrence: RU)
  Receive Date: 20140328
  Receipt Date: 20140529
  Transmission Date: 20141212
  Serious: Yes (Other)
  Sender: FDA-Public Use
  Company Number: RU-BAYER-2014-044460

PATIENT
  Age: 47 Year
  Sex: Female

DRUGS (1)
  1. QLAIRA [Suspect]
     Indication: CONTRACEPTION
     Dosage: UNK
     Dates: start: 201109

REACTIONS (8)
  - Immunodeficiency [Recovered/Resolved]
  - Nasopharyngitis [Recovered/Resolved]
  - Cough [Recovered/Resolved]
  - Nasopharyngitis [Recovered/Resolved]
  - Lacrimation increased [Recovered/Resolved]
  - Rotavirus infection [Recovered/Resolved]
  - Sinusitis [Recovered/Resolved]
  - Sinusitis [Recovered/Resolved]
